FAERS Safety Report 5470874-4 (Version None)
Quarter: 2007Q3

REPORT INFORMATION
  Report Type: 
  Country: None (occurrence: None)
  Receive Date: 20070928
  Receipt Date: 20070927
  Transmission Date: 20080115
  Serious: Yes (Hospitalization)
  Sender: FDA-Public Use
  Company Number: A0684753A

PATIENT
  Age: 34 Year
  Sex: Female

DRUGS (7)
  1. NICORETTE [Suspect]
     Indication: SMOKING CESSATION THERAPY
     Route: 002
     Dates: start: 20070507, end: 20070508
  2. SIMVASTATIN [Concomitant]
  3. MONOCORDIL [Concomitant]
  4. PROPRANOLOL [Concomitant]
  5. CAPTOPRIL [Concomitant]
  6. AAS [Concomitant]
  7. OMEPRAZOLE [Concomitant]

REACTIONS (1)
  - INFARCTION [None]
